FAERS Safety Report 8461918-6 (Version None)
Quarter: 2012Q2

REPORT INFORMATION
  Report Type: 
  Country: None (occurrence: None)
  Receive Date: 20120625
  Receipt Date: 20120612
  Transmission Date: 20120825
  Serious: Yes (Other)
  Sender: FDA-Public Use
  Company Number: GB-PFIZER INC-2012150781

PATIENT
  Sex: Female

DRUGS (1)
  1. EPIPEN [Suspect]

REACTIONS (3)
  - LOSS OF CONSCIOUSNESS [None]
  - HEART RATE INCREASED [None]
  - ACCIDENTAL EXPOSURE [None]
